FAERS Safety Report 18643537 (Version 1)
Quarter: 2020Q4

REPORT INFORMATION
  Report Type: Spontaneous
  Country: AU (occurrence: AU)
  Receive Date: 20201221
  Receipt Date: 20201221
  Transmission Date: 20210114
  Serious: Yes (Other)
  Sender: FDA-Public Use
  Company Number: AU-BAXTER-2020BAX026161

PATIENT
  Age: 26 Year
  Sex: Male

DRUGS (19)
  1. HOLOXAN IFOSFAMIDE 2G POWDER FOR INJECTION VIAL (OF) [Suspect]
     Active Substance: IFOSFAMIDE
     Dosage: R-IVAC REGIMEN
     Route: 065
     Dates: start: 20200112
  2. RITUXIMAB. [Suspect]
     Active Substance: RITUXIMAB
     Dosage: R-IVAC REGIMEN
     Route: 065
     Dates: start: 20191114
  3. DOXIL [Suspect]
     Active Substance: DOXORUBICIN HYDROCHLORIDE
     Dosage: R-CODOX REGIMEN
     Route: 065
     Dates: start: 20191209
  4. CYTARABINE. [Suspect]
     Active Substance: CYTARABINE
     Indication: BURKITT^S LYMPHOMA
     Dosage: R-IVAC REGIMEN
     Route: 065
     Dates: start: 20191114
  5. CYTARABINE. [Suspect]
     Active Substance: CYTARABINE
     Dosage: R-IVAC REGIMEN
     Route: 065
     Dates: start: 20200112
  6. ENDOXAN CYCLOPHOSPHAMIDE 2G (AS MONOHYDRATE) POWDER FOR INJECTION VIAL [Suspect]
     Active Substance: CYCLOPHOSPHAMIDE
     Dosage: R-CODOX REGIMEN
     Route: 065
     Dates: start: 20191209
  7. RITUXIMAB. [Suspect]
     Active Substance: RITUXIMAB
     Indication: BURKITT^S LYMPHOMA
     Dosage: R-CODOX M REGIMEN
     Route: 065
     Dates: start: 20190915
  8. VINCRISTINE SULFATE. [Suspect]
     Active Substance: VINCRISTINE SULFATE
     Indication: BURKITT^S LYMPHOMA
     Dosage: R-CODOX M REGIMEN
     Route: 065
     Dates: start: 20190915
  9. HOLOXAN IFOSFAMIDE 2G POWDER FOR INJECTION VIAL (OF) [Suspect]
     Active Substance: IFOSFAMIDE
     Indication: BURKITT^S LYMPHOMA
     Dosage: R-IVAC REGIMEN
     Route: 065
     Dates: start: 20191114
  10. VINCRISTINE SULFATE. [Suspect]
     Active Substance: VINCRISTINE SULFATE
     Dosage: R-CODOX REGIMEN
     Route: 065
     Dates: start: 20191209
  11. DOXIL [Suspect]
     Active Substance: DOXORUBICIN HYDROCHLORIDE
     Indication: BURKITT^S LYMPHOMA
     Dosage: R-CODOX M REGIMEN
     Route: 065
     Dates: start: 20190915
  12. ETOPOSIDE. [Suspect]
     Active Substance: ETOPOSIDE
     Dosage: R-IVAC REGIMEN
     Route: 065
     Dates: start: 20200112
  13. METHOTREXATE. [Suspect]
     Active Substance: METHOTREXATE
     Route: 037
     Dates: start: 20200216
  14. RITUXIMAB. [Suspect]
     Active Substance: RITUXIMAB
     Dosage: R-CODOX REGIMEN
     Route: 065
     Dates: start: 20191209
  15. ENDOXAN CYCLOPHOSPHAMIDE 2G (AS MONOHYDRATE) POWDER FOR INJECTION VIAL [Suspect]
     Active Substance: CYCLOPHOSPHAMIDE
     Indication: BURKITT^S LYMPHOMA
     Dosage: R-CODOX M REGIMEN
     Route: 065
     Dates: start: 20190915
  16. ETOPOSIDE. [Suspect]
     Active Substance: ETOPOSIDE
     Indication: BURKITT^S LYMPHOMA
     Dosage: R-IVAC REGIMEN
     Route: 065
     Dates: start: 20191114
  17. METHOTREXATE. [Suspect]
     Active Substance: METHOTREXATE
     Dosage: R-CODOX REGIMEN
     Route: 065
     Dates: start: 20191209
  18. METHOTREXATE. [Suspect]
     Active Substance: METHOTREXATE
     Indication: BURKITT^S LYMPHOMA
     Dosage: R-CODOX M REGIMEN
     Route: 065
     Dates: start: 20190915
  19. RITUXIMAB. [Suspect]
     Active Substance: RITUXIMAB
     Dosage: R-IVAC REGIMEN
     Route: 065
     Dates: start: 20200112

REACTIONS (3)
  - Burkitt^s lymphoma [Unknown]
  - Staphylococcal bacteraemia [Unknown]
  - Febrile neutropenia [Unknown]

NARRATIVE: CASE EVENT DATE: 202002
